FAERS Safety Report 15444105 (Version 1)
Quarter: 2018Q3

REPORT INFORMATION
  Report Type: Spontaneous
  Country: US (occurrence: US)
  Receive Date: 20180928
  Receipt Date: 20180928
  Transmission Date: 20181010
  Serious: No
  Sender: FDA-Public Use
  Company Number: US-BAUSCH-BL-2018-025565

PATIENT
  Sex: Female

DRUGS (3)
  1. RETIN?A MICRO [Suspect]
     Active Substance: TRETINOIN
     Indication: DARK CIRCLES UNDER EYES
  2. RETIN?A MICRO [Suspect]
     Active Substance: TRETINOIN
     Indication: PRODUCT USE IN UNAPPROVED INDICATION
  3. RETIN?A MICRO [Suspect]
     Active Substance: TRETINOIN
     Indication: PIGMENTATION DISORDER
     Route: 061

REACTIONS (5)
  - Product use in unapproved indication [Unknown]
  - Skin wrinkling [Not Recovered/Not Resolved]
  - Application site pruritus [Not Recovered/Not Resolved]
  - Application site pain [Not Recovered/Not Resolved]
  - Eye swelling [Not Recovered/Not Resolved]
